FAERS Safety Report 11247227 (Version 1)
Quarter: 2015Q3

REPORT INFORMATION
  Report Type: Spontaneous
  Country: US (occurrence: None)
  Receive Date: 20150706
  Receipt Date: 20150706
  Transmission Date: 20151125
  Serious: Yes (Other)
  Sender: FDA-Public Use
  Company Number: None

PATIENT
  Age: 51 Year
  Sex: Female

DRUGS (1)
  1. SERTRALINE [Suspect]
     Active Substance: SERTRALINE HYDROCHLORIDE
     Indication: ANXIETY
     Route: 048

REACTIONS (6)
  - Drug withdrawal syndrome [None]
  - Paraesthesia [None]
  - Anxiety [None]
  - Product substitution issue [None]
  - Product quality issue [None]
  - Impaired work ability [None]

NARRATIVE: CASE EVENT DATE: 20150414
